FAERS Safety Report 5907266-7 (Version None)
Quarter: 2008Q4

REPORT INFORMATION
  Report Type: 
  Country: None (occurrence: None)
  Receive Date: 20081003
  Receipt Date: 20080928
  Transmission Date: 20090506
  Serious: Yes (Other)
  Sender: FDA-Public Use
  Company Number: PHEH2008US08656

PATIENT
  Sex: Female

DRUGS (2)
  1. SANDOSTATIN [Suspect]
     Dosage: 100 ML, TID
     Dates: start: 20080906, end: 20080908
  2. SANDOSTATIN [Suspect]
     Dosage: 50 ML, QD
     Dates: start: 20080901

REACTIONS (6)
  - DISCOMFORT [None]
  - DRUG INTOLERANCE [None]
  - MALAISE [None]
  - MIGRAINE [None]
  - OVERDOSE [None]
  - VOMITING [None]
